FAERS Safety Report 7339945-1 (Version None)
Quarter: 2011Q1

REPORT INFORMATION
  Report Type: 
  Country: None (occurrence: None)
  Receive Date: 20110309
  Receipt Date: 20110301
  Transmission Date: 20110831
  Serious: Yes (Hospitalization)
  Sender: FDA-Public Use
  Company Number: US-US-EMD SERONO, INC.-7016127

PATIENT
  Sex: Female

DRUGS (6)
  1. UNSPECIFIED MEDICATION FOR DEPRESSION [Concomitant]
     Indication: DEPRESSION
  2. ADVIL [Concomitant]
     Indication: PREMEDICATION
  3. REBIF [Suspect]
     Route: 058
  4. REBIF [Suspect]
     Indication: MULTIPLE SCLEROSIS
     Route: 058
     Dates: start: 20100811, end: 20100101
  5. REBIF [Suspect]
     Route: 058
     Dates: start: 20100101
  6. UNSPECIFIED MEDICATION FOR THYROID DISORDER [Concomitant]
     Indication: THYROID DISORDER

REACTIONS (6)
  - INJECTION SITE ERYTHEMA [None]
  - FATIGUE [None]
  - BLOOD PRESSURE DECREASED [None]
  - ILEITIS [None]
  - MALAISE [None]
  - TREMOR [None]
